FAERS Safety Report 25014804 (Version 2)
Quarter: 2025Q1

REPORT INFORMATION
  Report Type: Spontaneous
  Country: US (occurrence: US)
  Receive Date: 20250226
  Receipt Date: 20250303
  Transmission Date: 20250408
  Serious: No
  Sender: PFIZER
  Company Number: US-PFIZER INC-PV202400160218

PATIENT
  Age: 85 Year
  Sex: Female
  Weight: 73.03 kg

DRUGS (6)
  1. IBRANCE [Suspect]
     Active Substance: PALBOCICLIB
     Indication: Breast cancer female
     Route: 048
     Dates: start: 202312
  2. IBRANCE [Suspect]
     Active Substance: PALBOCICLIB
  3. AMLODIPINE [Concomitant]
     Active Substance: AMLODIPINE BESYLATE
     Indication: Hypertension
  4. EXEMESTANE [Concomitant]
     Active Substance: EXEMESTANE
  5. FOSINOPRIL [Concomitant]
     Active Substance: FOSINOPRIL
     Indication: Hypertension
  6. METOPROLOL [Concomitant]
     Active Substance: METOPROLOL
     Indication: Hypertension

REACTIONS (3)
  - Neoplasm progression [Unknown]
  - Product prescribing error [Unknown]
  - Off label use [Unknown]
